FAERS Safety Report 17749418 (Version 1)
Quarter: 2020Q2

REPORT INFORMATION
  Report Type: Spontaneous
  Country: DE (occurrence: DE)
  Receive Date: 20200506
  Receipt Date: 20200506
  Transmission Date: 20200714
  Serious: Yes (Other)
  Sender: FDA-Public Use
  Company Number: DE-HORMOSAN PHARMA GMBH-2020-01942

PATIENT
  Age: 80 Year
  Sex: Female

DRUGS (1)
  1. NITOMAN [Suspect]
     Active Substance: TETRABENAZINE
     Indication: PRODUCT USED FOR UNKNOWN INDICATION
     Dosage: 12.5 MILLIGRAM, SINGLE (HALF A TABLET NITOMAN 25 MG)
     Route: 065
     Dates: start: 20200423, end: 20200423

REACTIONS (2)
  - Accidental exposure to product [Unknown]
  - Bradycardia [Not Recovered/Not Resolved]

NARRATIVE: CASE EVENT DATE: 20200423
